FAERS Safety Report 20225559 (Version 2)
Quarter: 2022Q1

REPORT INFORMATION
  Report Type: Spontaneous
  Country: US (occurrence: US)
  Receive Date: 20211224
  Receipt Date: 20220331
  Transmission Date: 20220423
  Serious: No
  Sender: FDA-Public Use
  Company Number: US-NOVOPROD-877959

PATIENT
  Sex: Male

DRUGS (2)
  1. NOVOLOG [Suspect]
     Active Substance: INSULIN ASPART
     Indication: Type 2 diabetes mellitus
     Dosage: UNK
     Route: 058
     Dates: start: 202111
  2. NOVOLOG [Suspect]
     Active Substance: INSULIN ASPART
     Dosage: UNK (DOSE INCREASED)
     Route: 058

REACTIONS (2)
  - Malaise [Unknown]
  - Blood glucose increased [Unknown]
